FAERS Safety Report 10019118 (Version 1)
Quarter: 2014Q1

REPORT INFORMATION
  Report Type: Spontaneous
  Country: US (occurrence: US)
  Receive Date: 20140318
  Receipt Date: 20140318
  Transmission Date: 20141002
  Serious: No
  Sender: FDA-Public Use
  Company Number: US-BAUSCH-BL-2013-005670

PATIENT
  Age: 18 Year
  Sex: Female
  Weight: 46.31 kg

DRUGS (3)
  1. BACITRACIN ZINC AND POLYMYXIN B SULFATE OPHTHALMIC OINTMENT USP [Suspect]
     Indication: DACRYOCANALICULITIS
     Dosage: 1 RIBBON; RIGHT EYE; TWICE DAILY
     Route: 047
     Dates: start: 20131001, end: 20131003
  2. ALBUTEROL [Concomitant]
     Indication: ASTHMA
  3. LEVOTHYROXINE [Concomitant]
     Indication: HYPERTHYROIDISM

REACTIONS (1)
  - Vitreous floaters [Not Recovered/Not Resolved]
